FAERS Safety Report 18278974 (Version 1)
Quarter: 2020Q3

REPORT INFORMATION
  Report Type: Spontaneous
  Country: US (occurrence: US)
  Receive Date: 20200917
  Receipt Date: 20200917
  Transmission Date: 20201103
  Serious: Yes (Hospitalization, Other)
  Sender: FDA-Public Use
  Company Number: US-AMNEAL PHARMACEUTICALS-2020-AMRX-02825

PATIENT
  Age: 18 Year
  Sex: Male

DRUGS (1)
  1. DIVALPROEX SODIUM ER [Suspect]
     Active Substance: DIVALPROEX SODIUM
     Indication: SEIZURE
     Dosage: 1000 MILLIGRAM, BID
     Route: 065

REACTIONS (5)
  - Mesenteric vein thrombosis [Unknown]
  - Peripancreatic fluid collection [Unknown]
  - Pancreatic necrosis [Unknown]
  - Pancreatitis acute [Unknown]
  - Splenic vein thrombosis [Unknown]
